FAERS Safety Report 6759943-6 (Version None)
Quarter: 2010Q2

REPORT INFORMATION
  Report Type: 
  Country: None (occurrence: None)
  Receive Date: 20100608
  Receipt Date: 20100528
  Transmission Date: 20101027
  Serious: Yes (Other)
  Sender: FDA-Public Use
  Company Number: PK-BAYER-201027113GPV

PATIENT
  Age: 42 Year
  Sex: Male

DRUGS (4)
  1. CAMPATH [Suspect]
     Indication: STEM CELL TRANSPLANT
     Dosage: 3 CYCLES
     Dates: start: 20060101
  2. FLUDARABINE [Suspect]
     Indication: STEM CELL TRANSPLANT
     Dosage: 3 CYCLES
     Dates: start: 20060101
  3. MELPHALAN [Suspect]
     Indication: STEM CELL TRANSPLANT
     Dosage: 3 CYCLES
     Dates: start: 20060101
  4. CYCLOSPORINE [Concomitant]
     Indication: PROPHYLAXIS AGAINST GRAFT VERSUS HOST DISEASE

REACTIONS (13)
  - ACUTE GRAFT VERSUS HOST DISEASE IN LIVER [None]
  - ACUTE GRAFT VERSUS HOST DISEASE IN SKIN [None]
  - BLOOD LACTATE DEHYDROGENASE INCREASED [None]
  - FEBRILE NEUTROPENIA [None]
  - GLUCOSE TOLERANCE IMPAIRED [None]
  - GRAFT VERSUS HOST DISEASE [None]
  - HAEMOLYSIS [None]
  - HYPERBILIRUBINAEMIA [None]
  - MICROANGIOPATHY [None]
  - MUCOSAL ULCERATION [None]
  - PYREXIA [None]
  - RED BLOOD CELL ABNORMALITY [None]
  - RENAL IMPAIRMENT [None]
